FAERS Safety Report 24141705 (Version 2)
Quarter: 2024Q3

REPORT INFORMATION
  Report Type: Report from Study
  Country: US (occurrence: US)
  Receive Date: 20240726
  Receipt Date: 20240930
  Transmission Date: 20241017
  Serious: Yes (Hospitalization)
  Sender: NOVARTIS
  Company Number: US-002147023-NVSC2024US134927

PATIENT
  Sex: Female

DRUGS (1)
  1. KESIMPTA [Suspect]
     Active Substance: OFATUMUMAB
     Indication: Multiple sclerosis
     Dosage: 20 MG, QMO
     Route: 058

REACTIONS (10)
  - Illness [Unknown]
  - Abdominal pain upper [Unknown]
  - Pain [Unknown]
  - Infection [Unknown]
  - Urinary tract infection [Unknown]
  - Dysuria [Unknown]
  - Chromaturia [Unknown]
  - Constipation [Unknown]
  - Visual impairment [Unknown]
  - Pyrexia [Unknown]
